FAERS Safety Report 6418179-9 (Version None)
Quarter: 2009Q4

REPORT INFORMATION
  Report Type: 
  Country: None (occurrence: None)
  Receive Date: 20091028
  Receipt Date: 20091026
  Transmission Date: 20100525
  Serious: Yes (Hospitalization)
  Sender: FDA-Public Use
  Company Number: US-ELI_LILLY_AND_COMPANY-US200910006366

PATIENT
  Sex: Male
  Weight: 151.93 kg

DRUGS (6)
  1. BYETTA [Suspect]
     Indication: TYPE 2 DIABETES MELLITUS
     Dosage: 5 UG, 2/D
     Route: 058
     Dates: start: 20080101
  2. BYETTA [Suspect]
     Dosage: 10 UG, 2/D
     Route: 058
  3. GLIPIZIDE W/METFORMIN [Concomitant]
     Dosage: UNK, UNKNOWN
  4. SPIRIVA [Concomitant]
     Dosage: UNK, UNKNOWN
  5. ASPIRIN [Concomitant]
     Dosage: 81 MG, DAILY (1/D)
     Route: 048
  6. VITAMINS [Concomitant]
     Dosage: UNK, UNKNOWN

REACTIONS (9)
  - ARTHRALGIA [None]
  - ARTHRITIS [None]
  - BLOOD GLUCOSE INCREASED [None]
  - HYPERPHAGIA [None]
  - OEDEMA [None]
  - OEDEMA PERIPHERAL [None]
  - PULMONARY OEDEMA [None]
  - SLEEP APNOEA SYNDROME [None]
  - WEIGHT INCREASED [None]
